FAERS Safety Report 13685411 (Version 1)
Quarter: 2017Q2

REPORT INFORMATION
  Report Type: Spontaneous
  Country: CH (occurrence: CH)
  Receive Date: 20170623
  Receipt Date: 20170623
  Transmission Date: 20170830
  Serious: Yes (Hospitalization)
  Sender: FDA-Public Use
  Company Number: CH-009507513-1605CHE001545

PATIENT
  Sex: Male

DRUGS (2)
  1. SIMVASTATIN. [Suspect]
     Active Substance: SIMVASTATIN
     Dosage: 40 MG, QD
     Route: 048
     Dates: start: 20070718
  2. CRESTOR [Suspect]
     Active Substance: ROSUVASTATIN CALCIUM
     Dosage: 20 MG, QD
     Route: 048
     Dates: end: 2015

REACTIONS (8)
  - Chills [Recovered/Resolved]
  - Aggression [Unknown]
  - Depression [Unknown]
  - Cardiac disorder [Recovered/Resolved]
  - Sleep apnoea syndrome [Recovered/Resolved]
  - Visual impairment [Recovered/Resolved]
  - Skin reaction [Unknown]
  - Insomnia [Recovered/Resolved]

NARRATIVE: CASE EVENT DATE: 2007
